FAERS Safety Report 9909002 (Version 2)
Quarter: 2014Q1

REPORT INFORMATION
  Report Type: Spontaneous
  Country: BR (occurrence: BR)
  Receive Date: 20140219
  Receipt Date: 20140326
  Transmission Date: 20141002
  Serious: Yes (Other)
  Sender: FDA-Public Use
  Company Number: BR-JNJFOC-20140207617

PATIENT
  Sex: Female
  Weight: 78 kg

DRUGS (3)
  1. TYLEX [Suspect]
     Route: 065
  2. TYLEX [Suspect]
     Indication: PAIN
     Route: 065
     Dates: start: 201401
  3. ALL OTHER THERAPEUTIC PRODUCT [Concomitant]
     Indication: DIABETES MELLITUS
     Route: 065
     Dates: start: 2014

REACTIONS (6)
  - Abasia [Not Recovered/Not Resolved]
  - Labyrinthitis [Recovering/Resolving]
  - Malaise [Recovering/Resolving]
  - Vomiting [Not Recovered/Not Resolved]
  - Dizziness [Recovering/Resolving]
  - Drug ineffective [Unknown]
